FAERS Safety Report 20209036 (Version 2)
Quarter: 2022Q1

REPORT INFORMATION
  Report Type: Report from Study
  Country: US (occurrence: US)
  Receive Date: 20211220
  Receipt Date: 20220120
  Transmission Date: 20220423
  Serious: Yes (Other)
  Sender: FDA-Public Use
  Company Number: US-PFIZER INC-202101760858

PATIENT
  Age: 69 Year
  Sex: Female
  Weight: 48.3 kg

DRUGS (1)
  1. CRIZOTINIB [Suspect]
     Active Substance: CRIZOTINIB
     Indication: Pancreatic carcinoma metastatic
     Dosage: 250 MG, CYCLIC (28 DAYS BID)
     Route: 048
     Dates: start: 20160805, end: 20160930

REACTIONS (1)
  - Pulmonary embolism [Not Recovered/Not Resolved]

NARRATIVE: CASE EVENT DATE: 20160930
